FAERS Safety Report 9626707 (Version 1)
Quarter: 2013Q4

REPORT INFORMATION
  Report Type: Spontaneous
  Country: SE (occurrence: SE)
  Receive Date: 20131016
  Receipt Date: 20131016
  Transmission Date: 20140711
  Serious: Yes (Hospitalization)
  Sender: FDA-Public Use
  Company Number: SE-ELI_LILLY_AND_COMPANY-SE201310002723

PATIENT
  Age: 67 Year
  Sex: Male

DRUGS (2)
  1. PRASUGREL HYDROCHLORIDE [Suspect]
     Indication: ANTIPLATELET THERAPY
     Dosage: 60 MG, SINGLE
  2. PRASUGREL HYDROCHLORIDE [Suspect]
     Dosage: 10 MG, QD

REACTIONS (3)
  - Cardiac tamponade [Recovered/Resolved]
  - Platelet aggregation inhibition [Recovered/Resolved]
  - Post procedural haemorrhage [Recovered/Resolved]
